FAERS Safety Report 4366472-6 (Version None)
Quarter: 2004Q2

REPORT INFORMATION
  Report Type: 
  Country: None (occurrence: None)
  Receive Date: 20040527
  Receipt Date: 20040412
  Transmission Date: 20050107
  Serious: No
  Sender: FDA-Public Use
  Company Number: US-BRISTOL-MYERS SQUIBB COMPANY-12557815

PATIENT
  Age: 48 Year
  Sex: Male
  Weight: 107 kg

DRUGS (2)
  1. ERBITUX [Suspect]
     Indication: COLON CANCER
     Dosage: 2ND INFUSION 400 MG ON 09-APR-2004.
     Route: 042
     Dates: start: 20040402, end: 20040402
  2. BENADRYL [Concomitant]
     Indication: PREMEDICATION
     Dosage: SECOND DOSE GIVEN ON 09-APR-2004.
     Dates: start: 20040402, end: 20040402

REACTIONS (3)
  - NASAL DRYNESS [None]
  - PAIN [None]
  - RASH [None]
